FAERS Safety Report 5280840-X (Version None)
Quarter: 2007Q1

REPORT INFORMATION
  Report Type: 
  Country: None (occurrence: None)
  Receive Date: 20070329
  Receipt Date: 20070320
  Transmission Date: 20070707
  Serious: Yes (Hospitalization, Other)
  Sender: FDA-Public Use
  Company Number: JP-PFIZER INC-2007022927

PATIENT
  Sex: Male

DRUGS (3)
  1. ALPRAZOLAM [Suspect]
     Route: 064
  2. ETIZOLAM [Suspect]
     Route: 064
  3. MAPROTILINE HYDROCHLORIDE [Suspect]
     Route: 064

REACTIONS (4)
  - DRUG EXPOSURE DURING PREGNANCY [None]
  - DRUG WITHDRAWAL SYNDROME [None]
  - MUSCULAR DYSTROPHY [None]
  - RHABDOMYOLYSIS [None]
